FAERS Safety Report 15064878 (Version 1)
Quarter: 2018Q2

REPORT INFORMATION
  Report Type: Spontaneous
  Country: JP (occurrence: JP)
  Receive Date: 20180626
  Receipt Date: 20180626
  Transmission Date: 20180711
  Serious: Yes (Other)
  Sender: FDA-Public Use
  Company Number: JP-009507513-1806JPN002193J

PATIENT
  Age: 87 Year
  Sex: Female

DRUGS (2)
  1. ERELSA TABLETS 50MG [Suspect]
     Active Substance: ELBASVIR
     Dosage: UNK
     Route: 048
     Dates: start: 201804
  2. GRAZYNA TABLETS 50MG [Suspect]
     Active Substance: GRAZOPREVIR
     Dosage: UNK
     Route: 048
     Dates: start: 201804

REACTIONS (1)
  - Hepatitis B reactivation [Unknown]

NARRATIVE: CASE EVENT DATE: 2018
